FAERS Safety Report 25136462 (Version 2)
Quarter: 2025Q2

REPORT INFORMATION
  Report Type: Spontaneous
  Country: US (occurrence: US)
  Receive Date: 20250328
  Receipt Date: 20250421
  Transmission Date: 20250716
  Serious: Yes (Other)
  Sender: STRIDES
  Company Number: None

PATIENT
  Age: 71 Year
  Sex: Female
  Weight: 72.1 kg

DRUGS (3)
  1. PREDNISONE [Suspect]
     Active Substance: PREDNISONE
     Indication: Colitis ulcerative
     Route: 048
  2. AZATHIOPRINE [Suspect]
     Active Substance: AZATHIOPRINE
     Indication: Colitis ulcerative
     Route: 048
  3. EFUDEX [Suspect]
     Active Substance: FLUOROURACIL
     Indication: Actinic keratosis
     Route: 061

REACTIONS (3)
  - Paradoxical drug reaction [Recovered/Resolved]
  - Squamous cell carcinoma of skin [Recovered/Resolved]
  - Condition aggravated [Recovered/Resolved]
